FAERS Safety Report 24529919 (Version 1)
Quarter: 2024Q4

REPORT INFORMATION
  Report Type: Spontaneous
  Country: US (occurrence: US)
  Receive Date: 20241021
  Receipt Date: 20241021
  Transmission Date: 20250114
  Serious: No
  Sender: PFIZER
  Company Number: US-PFIZER INC-202400279285

PATIENT
  Age: 62 Year
  Sex: Female

DRUGS (2)
  1. ONDANSETRON [Suspect]
     Active Substance: ONDANSETRON
     Dosage: UNK
  2. TUKYSA [Concomitant]
     Active Substance: TUCATINIB
     Dosage: TAKE TWO TABLETS BY MOUTH IN THE MORNING AND AT BEDTIME
     Route: 048
     Dates: start: 20240919

REACTIONS (1)
  - Dizziness [Not Recovered/Not Resolved]
